FAERS Safety Report 6011214-1 (Version None)
Quarter: 2008Q4

REPORT INFORMATION
  Report Type: 
  Country: None (occurrence: None)
  Receive Date: 20081218
  Receipt Date: 20081215
  Transmission Date: 20090506
  Serious: Yes (Hospitalization)
  Sender: FDA-Public Use
  Company Number: AU-MERCK-0806AUS00042

PATIENT
  Age: 71 Year
  Sex: Female

DRUGS (8)
  1. ZOCOR [Suspect]
     Route: 048
     Dates: start: 19970101
  2. ZOCOR [Suspect]
     Route: 048
  3. ZOCOR [Suspect]
     Route: 048
     Dates: end: 20060101
  4. ZOCOR [Suspect]
     Route: 048
     Dates: start: 20060101, end: 20080101
  5. IRBESARTAN [Concomitant]
     Indication: HYPERTENSION
     Route: 065
  6. METOPROLOL [Concomitant]
     Route: 065
  7. WARFARIN [Concomitant]
     Indication: ATRIAL FIBRILLATION
     Route: 065
  8. NITROGLYCERIN [Concomitant]
     Indication: ANGINA PECTORIS
     Route: 061

REACTIONS (3)
  - CARDIAC DISORDER [None]
  - HERPES ZOSTER [None]
  - MUSCLE SPASMS [None]
